FAERS Safety Report 22384025 (Version 1)
Quarter: 2023Q2

REPORT INFORMATION
  Report Type: Spontaneous
  Country: US (occurrence: None)
  Receive Date: 20230527
  Receipt Date: 20230527
  Transmission Date: 20230722
  Serious: Yes (Disabling)
  Sender: FDA-Public Use
  Company Number: None

PATIENT
  Age: 63 Year
  Sex: Female
  Weight: 99 kg

DRUGS (9)
  1. VIIBRYD [Suspect]
     Active Substance: VILAZODONE HYDROCHLORIDE
     Indication: Depression
     Dosage: OTHER QUANTITY : 1.5 TABLET(S);?FREQUENCY : DAILY;?
     Route: 048
  2. ATORVASTATIN [Concomitant]
     Active Substance: ATORVASTATIN
  3. EFFEXOR [Concomitant]
     Active Substance: VENLAFAXINE HYDROCHLORIDE
  4. CPAP Device [Concomitant]
  5. VITAMINS [Concomitant]
     Active Substance: VITAMINS
  6. occuvite [Concomitant]
  7. IRON [Concomitant]
     Active Substance: IRON
  8. CALCIUM [Concomitant]
     Active Substance: CALCIUM
  9. SELENIUM [Concomitant]
     Active Substance: SELENIUM

REACTIONS (6)
  - Arthralgia [None]
  - Balance disorder [None]
  - Hypotonia [None]
  - Depressed level of consciousness [None]
  - Agitation [None]
  - Bowel movement irregularity [None]

NARRATIVE: CASE EVENT DATE: 20220720
